FAERS Safety Report 4766582-5 (Version None)
Quarter: 2005Q3

REPORT INFORMATION
  Report Type: 
  Country: None (occurrence: None)
  Receive Date: 20050908
  Receipt Date: 20050823
  Transmission Date: 20060218
  Serious: Yes (Other)
  Sender: FDA-Public Use
  Company Number: DSA_70696_2005

PATIENT
  Age: 86 Year
  Sex: Male

DRUGS (3)
  1. DARVOCET-N 100 [Suspect]
     Indication: PROCEDURAL PAIN
     Dosage: 2 TAB QDAY PO
     Route: 048
     Dates: end: 20050822
  2. DARVOCET-N 100 [Suspect]
     Indication: PROCEDURAL PAIN
     Dosage: 9 TAB QDAY PO
     Route: 048
     Dates: start: 20050817
  3. DARVOCET-N 100 [Suspect]
     Indication: PAIN
     Dosage: 2 TAB QDAY PO
     Route: 048
     Dates: start: 20050805

REACTIONS (13)
  - ANXIETY [None]
  - CONFUSIONAL STATE [None]
  - DRUG HYPERSENSITIVITY [None]
  - FEAR [None]
  - FIBRIN D DIMER INCREASED [None]
  - HAEMATOCRIT DECREASED [None]
  - HAEMOGLOBIN DECREASED [None]
  - HYPERHIDROSIS [None]
  - INSOMNIA [None]
  - LYMPHOCYTE COUNT DECREASED [None]
  - NEUTROPHIL COUNT INCREASED [None]
  - PRURITUS GENERALISED [None]
  - RED BLOOD CELL COUNT DECREASED [None]
